FAERS Safety Report 7909957-5 (Version None)
Quarter: 2011Q4

REPORT INFORMATION
  Report Type: 
  Country: None (occurrence: None)
  Receive Date: 20111111
  Receipt Date: 20111107
  Transmission Date: 20120403
  Serious: Yes (Hospitalization)
  Sender: FDA-Public Use
  Company Number: US-ABBOTT-11P-163-0872157-00

PATIENT
  Sex: Female
  Weight: 77.18 kg

DRUGS (20)
  1. HUMIRA [Suspect]
     Indication: RHEUMATOID ARTHRITIS
     Dates: start: 20070101
  2. NEXIUM [Concomitant]
     Indication: GASTROOESOPHAGEAL REFLUX DISEASE
  3. ZYRTEC [Concomitant]
     Indication: HYPERSENSITIVITY
  4. PREDNISONE TAB [Concomitant]
     Indication: RHEUMATOID ARTHRITIS
  5. ADVAIR DISKUS 100/50 [Concomitant]
     Indication: CHRONIC OBSTRUCTIVE PULMONARY DISEASE
  6. PRAVASTATIN [Concomitant]
     Indication: HYPERLIPIDAEMIA
  7. BETAMETHASONE [Concomitant]
     Indication: EAR DISORDER
  8. XANAFLAX [Concomitant]
     Indication: FIBROMYALGIA
  9. FLONASE [Concomitant]
     Indication: HYPERSENSITIVITY
  10. MYSOLINE [Concomitant]
     Indication: TREMOR
  11. METHOTREXATE [Concomitant]
     Indication: RHEUMATOID ARTHRITIS
  12. FOLIC ACID [Concomitant]
     Indication: VITAMIN SUPPLEMENTATION
  13. COMBIVENT [Concomitant]
     Indication: CHRONIC OBSTRUCTIVE PULMONARY DISEASE
  14. SYNTHROID [Concomitant]
     Indication: HYPOTHYROIDISM
  15. VICODIN [Concomitant]
     Indication: RHEUMATOID ARTHRITIS
  16. XANAX [Concomitant]
     Indication: ANXIETY
  17. PREMARIN [Concomitant]
     Indication: HORMONE REPLACEMENT THERAPY
  18. LISINOPRIL [Concomitant]
     Indication: HYPERTENSION
  19. FIBER THERAPY [Concomitant]
     Indication: CONSTIPATION PROPHYLAXIS
  20. CENTRUM SILVER [Concomitant]
     Indication: VITAMIN SUPPLEMENTATION

REACTIONS (6)
  - HEADACHE [None]
  - BLOOD PRESSURE INCREASED [None]
  - MYOCARDIAL INFARCTION [None]
  - MUSCULOSKELETAL PAIN [None]
  - CHEST PAIN [None]
  - HYPOAESTHESIA [None]
